FAERS Safety Report 8785694 (Version 2)
Quarter: 2012Q4

REPORT INFORMATION
  Report Type: Report from Study
  Country: JP (occurrence: JP)
  Receive Date: 20120914
  Receipt Date: 20121120
  Transmission Date: 20130627
  Serious: Yes (Other)
  Sender: FDA-Public Use
  Company Number: JP-JNJFOC-20120904157

PATIENT
  Age: 77 Year
  Sex: Female

DRUGS (5)
  1. REMINYL [Suspect]
     Indication: DEMENTIA ALZHEIMER^S TYPE
     Route: 048
     Dates: start: 20111126
  2. REMINYL [Suspect]
     Indication: DEMENTIA ALZHEIMER^S TYPE
     Route: 048
     Dates: start: 20111029, end: 20111125
  3. YOKUKAN-SAN [Concomitant]
     Indication: DEMENTIA ALZHEIMER^S TYPE
     Dosage: dosage form was granulated powder
     Route: 048
  4. BONALON [Concomitant]
     Indication: OSTEOPOROSIS
     Route: 048
  5. LIPITOR [Concomitant]
     Indication: DYSLIPIDAEMIA
     Route: 048

REACTIONS (1)
  - Iron deficiency anaemia [Recovering/Resolving]
